FAERS Safety Report 18920732 (Version 1)
Quarter: 2021Q1

REPORT INFORMATION
  Report Type: Spontaneous
  Country: FR (occurrence: FR)
  Receive Date: 20210222
  Receipt Date: 20210222
  Transmission Date: 20210420
  Serious: Yes (Hospitalization, Disabling, Other)
  Sender: FDA-Public Use
  Company Number: FR-SA-2020SA237397

PATIENT
  Age: 44 Year
  Sex: Female
  Weight: 97 kg

DRUGS (3)
  1. ALCOHOL. [Concomitant]
     Active Substance: ALCOHOL
  2. ADAPEL [Concomitant]
  3. AUBAGIO [Suspect]
     Active Substance: TERIFLUNOMIDE
     Indication: MULTIPLE SCLEROSIS
     Dosage: UNK UNK, TOTAL
     Route: 065
     Dates: start: 201804, end: 202010

REACTIONS (4)
  - Housebound [Unknown]
  - Multiple sclerosis relapse [Unknown]
  - Inflammation [Unknown]
  - Impaired work ability [Unknown]

NARRATIVE: CASE EVENT DATE: 202006
